FAERS Safety Report 15933506 (Version 4)
Quarter: 2020Q1

REPORT INFORMATION
  Report Type: Spontaneous
  Country: US (occurrence: US)
  Receive Date: 20190207
  Receipt Date: 20200311
  Transmission Date: 20200409
  Serious: Yes (Other)
  Sender: FDA-Public Use
  Company Number: US-ASTRAZENECA-2018SF66023

PATIENT
  Age: 23408 Day
  Sex: Female
  Weight: 96.6 kg

DRUGS (50)
  1. NEXIUM [Suspect]
     Active Substance: ESOMEPRAZOLE MAGNESIUM
     Dosage: FOR MULTIPLE AND VARIOUS YEARS.
     Route: 048
  2. PREVACID [Suspect]
     Active Substance: LANSOPRAZOLE
     Route: 065
     Dates: start: 1983
  3. MAXALT [Concomitant]
     Active Substance: RIZATRIPTAN BENZOATE
  4. LANTUS [Concomitant]
     Active Substance: INSULIN GLARGINE
  5. TUMS [Concomitant]
     Active Substance: CALCIUM CARBONATE
  6. NEXIUM 24HR [Suspect]
     Active Substance: ESOMEPRAZOLE MAGNESIUM
     Route: 048
  7. BUSPAR [Concomitant]
     Active Substance: BUSPIRONE HYDROCHLORIDE
  8. ASPIR-81 [Concomitant]
     Active Substance: ASPIRIN
  9. PREVACID 24 HR [Suspect]
     Active Substance: LANSOPRAZOLE
     Route: 065
  10. NOVOLOG [Concomitant]
     Active Substance: INSULIN ASPART
  11. OXYCONTIN [Concomitant]
     Active Substance: OXYCODONE HYDROCHLORIDE
  12. ONDASETRON [Concomitant]
     Active Substance: ONDANSETRON
  13. ZETIA [Concomitant]
     Active Substance: EZETIMIBE
  14. NORCO [Concomitant]
     Active Substance: ACETAMINOPHEN\HYDROCODONE BITARTRATE
  15. CIMETIDINE [Concomitant]
     Active Substance: CIMETIDINE
  16. TAGAMET [Concomitant]
     Active Substance: CIMETIDINE
  17. BUPROPION. [Concomitant]
     Active Substance: BUPROPION
  18. IOPHEN [Concomitant]
  19. VOLTAREN [Concomitant]
     Active Substance: DICLOFENAC SODIUM
  20. TOPAMAX [Concomitant]
     Active Substance: TOPIRAMATE
  21. ATIVAN [Concomitant]
     Active Substance: LORAZEPAM
  22. PHENERGAN [Concomitant]
     Active Substance: PROMETHAZINE HYDROCHLORIDE
  23. INSULIN [Concomitant]
     Active Substance: INSULIN NOS
  24. MAALOX ANTACID [Concomitant]
     Active Substance: ALUMINUM HYDROXIDE\DIMETHICONE\MAGNESIUM HYDROXIDE
  25. HYDROXYZINE [Concomitant]
     Active Substance: HYDROXYZINE HYDROCHLORIDE
  26. NEXIUM [Suspect]
     Active Substance: ESOMEPRAZOLE MAGNESIUM
     Route: 048
  27. PRILOSEC OTC [Suspect]
     Active Substance: OMEPRAZOLE MAGNESIUM
     Route: 048
  28. ZOLPIDEM TARTRATE. [Concomitant]
     Active Substance: ZOLPIDEM TARTRATE
  29. METFORMIN [Concomitant]
     Active Substance: METFORMIN HYDROCHLORIDE
  30. CYMBALTA [Concomitant]
     Active Substance: DULOXETINE HYDROCHLORIDE
  31. BENADRYL [Concomitant]
     Active Substance: DIPHENHYDRAMINE HYDROCHLORIDE
  32. GAVISCON [Concomitant]
     Active Substance: ALUMINUM HYDROXIDE\MAGNESIUM CARBONATE
  33. MYLANTA [Concomitant]
     Active Substance: ALUMINUM HYDROXIDE\DIMETHICONE\MAGNESIUM HYDROXIDE
  34. AZITHROMYCIN ANHYDROUS. [Concomitant]
     Active Substance: AZITHROMYCIN ANHYDROUS
  35. PRILOSEC [Suspect]
     Active Substance: OMEPRAZOLE MAGNESIUM
     Route: 048
     Dates: start: 1996
  36. IMITREX [Concomitant]
     Active Substance: SUMATRIPTAN SUCCINATE
  37. PAXIL [Concomitant]
     Active Substance: PAROXETINE HYDROCHLORIDE
  38. PEPCID [Concomitant]
     Active Substance: FAMOTIDINE
  39. SUMATRIPTAN. [Concomitant]
     Active Substance: SUMATRIPTAN
  40. NEXIUM [Suspect]
     Active Substance: ESOMEPRAZOLE MAGNESIUM
     Route: 048
     Dates: start: 1980
  41. NEXIUM [Suspect]
     Active Substance: ESOMEPRAZOLE MAGNESIUM
     Route: 048
     Dates: start: 20120627, end: 20120718
  42. PRILOSEC [Suspect]
     Active Substance: OMEPRAZOLE MAGNESIUM
     Route: 048
     Dates: start: 1983, end: 1996
  43. PRILOSEC [Suspect]
     Active Substance: OMEPRAZOLE MAGNESIUM
     Dosage: GENERIC
     Route: 065
     Dates: start: 1990
  44. ZOFRAN [Concomitant]
     Active Substance: ONDANSETRON HYDROCHLORIDE
  45. BUTRANS [Concomitant]
     Active Substance: BUPRENORPHINE
  46. COZAAR [Concomitant]
     Active Substance: LOSARTAN POTASSIUM
  47. VAGIFEM [Concomitant]
     Active Substance: ESTRADIOL
  48. METHADONE [Concomitant]
     Active Substance: METHADONE HYDROCHLORIDE
  49. CLONAZEPAM. [Concomitant]
     Active Substance: CLONAZEPAM
  50. ZANTAC [Concomitant]
     Active Substance: RANITIDINE HYDROCHLORIDE

REACTIONS (4)
  - Chronic kidney disease [Unknown]
  - Renal failure [Unknown]
  - Rebound acid hypersecretion [Unknown]
  - Gastritis [Not Recovered/Not Resolved]

NARRATIVE: CASE EVENT DATE: 20130204
